FAERS Safety Report 19910169 (Version 1)
Quarter: 2021Q4

REPORT INFORMATION
  Report Type: Report from Study
  Country: None (occurrence: US)
  Receive Date: 20211003
  Receipt Date: 20211003
  Transmission Date: 20220303
  Serious: Yes (Other)
  Sender: FDA-Public Use
  Company Number: US-ABBVIE-21K-163-3951246-00

PATIENT

DRUGS (1)
  1. HUMIRA [Suspect]
     Active Substance: ADALIMUMAB
     Indication: Rheumatoid arthritis
     Dosage: CF
     Route: 058

REACTIONS (6)
  - Exostosis [Unknown]
  - Systemic lupus erythematosus [Unknown]
  - Neoplasm malignant [Unknown]
  - Dementia [Unknown]
  - Attention deficit hyperactivity disorder [Unknown]
  - Bone swelling [Unknown]
